FAERS Safety Report 8200804-3 (Version None)
Quarter: 2012Q1

REPORT INFORMATION
  Report Type: 
  Country: None (occurrence: None)
  Receive Date: 20120307
  Receipt Date: 20120228
  Transmission Date: 20120608
  Serious: Yes (Hospitalization, Other)
  Sender: FDA-Public Use
  Company Number: 216427

PATIENT
  Sex: Male

DRUGS (1)
  1. DAIVOBET OINTMENT (DAIVOBET /01643401/ (OINTMENT) [Suspect]
     Indication: PSORIASIS
     Dosage: TOPICAL
     Route: 061
     Dates: start: 19800101, end: 20120221

REACTIONS (1)
  - SKIN CANCER [None]
